FAERS Safety Report 9494753 (Version 3)
Quarter: 2013Q4

REPORT INFORMATION
  Report Type: Spontaneous
  Country: US (occurrence: US)
  Receive Date: 20130903
  Receipt Date: 20131009
  Transmission Date: 20140711
  Serious: Yes (Death)
  Sender: FDA-Public Use
  Company Number: US-PFIZER INC-2013249662

PATIENT
  Age: 67 Year
  Sex: Male

DRUGS (2)
  1. XALKORI [Suspect]
     Indication: LUNG NEOPLASM MALIGNANT
     Dosage: 250 MG, 2X/DAY
     Dates: start: 201305
  2. XALKORI [Suspect]
     Indication: BRONCHIAL NEOPLASM
     Dosage: 250 MG, UNK
     Dates: start: 20130815

REACTIONS (3)
  - Death [Fatal]
  - Fluid retention [Recovered/Resolved]
  - Dyspnoea [Recovered/Resolved]
